FAERS Safety Report 4529412-2 (Version None)
Quarter: 2004Q4

REPORT INFORMATION
  Report Type: 
  Country: None (occurrence: None)
  Receive Date: 20041215
  Receipt Date: 20041215
  Transmission Date: 20050328
  Serious: Yes (Other)
  Sender: FDA-Public Use
  Company Number: None

PATIENT
  Sex: Female
  Weight: 113.3993 kg

DRUGS (2)
  1. PHENYTOIN [Suspect]
     Indication: COMPLEX PARTIAL SEIZURES
     Dosage: 100 MG IV 1X WK  III OTHER
     Dates: start: 20041001, end: 20041101
  2. PHENYTOIN [Suspect]
     Indication: EPILEPSY
     Dosage: 100 MG IV 1X WK  III OTHER
     Dates: start: 20041001, end: 20041101

REACTIONS (1)
  - CONVULSION [None]
